FAERS Safety Report 5899701-8 (Version None)
Quarter: 2008Q3

REPORT INFORMATION
  Report Type: 
  Country: None (occurrence: None)
  Receive Date: 20080926
  Receipt Date: 20080912
  Transmission Date: 20090109
  Serious: Yes (Other)
  Sender: FDA-Public Use
  Company Number: FR-ELI_LILLY_AND_COMPANY-FR200809003030

PATIENT
  Age: 79 Year
  Sex: Female
  Weight: 48 kg

DRUGS (3)
  1. OPTRUMA [Suspect]
     Indication: KYPHOSIS
     Dosage: UNK, UNKNOWN
     Route: 048
     Dates: start: 20050901, end: 20080801
  2. IDEOS [Concomitant]
     Dosage: 1 D/F, DAILY (1/D)
     Route: 065
     Dates: start: 20050901
  3. FLUDEX [Concomitant]
     Dosage: 1 D/F, DAILY (1/D)
     Route: 065
     Dates: start: 20070327

REACTIONS (1)
  - CERVIX CARCINOMA [None]
